FAERS Safety Report 9720435 (Version 1)
Quarter: 2013Q4

REPORT INFORMATION
  Report Type: Report from Study
  Country: CA (occurrence: CA)
  Receive Date: 20131129
  Receipt Date: 20131129
  Transmission Date: 20140711
  Serious: Yes (Hospitalization)
  Sender: FDA-Public Use
  Company Number: CA-JNJFOC-20131114383

PATIENT
  Age: 41 Year
  Sex: Female
  Weight: 49.1 kg

DRUGS (1)
  1. REMICADE [Suspect]
     Indication: CROHN^S DISEASE
     Dosage: THERAPY DURATION 24 (UNITS UNSPECIFIED)
     Route: 042

REACTIONS (2)
  - Hypercalcaemia [Recovered/Resolved]
  - Dehydration [Recovered/Resolved]
